FAERS Safety Report 11283312 (Version 2)
Quarter: 2015Q3

REPORT INFORMATION
  Report Type: Spontaneous
  Country: US (occurrence: US)
  Receive Date: 20150720
  Receipt Date: 20150810
  Transmission Date: 20151125
  Serious: Yes (Death, Other)
  Sender: FDA-Public Use
  Company Number: US-GLAXOSMITHKLINE INC.-US2015GSK103313

PATIENT
  Age: 36 Year
  Sex: Female
  Weight: 75.28 kg

DRUGS (1)
  1. VOTRIENT [Suspect]
     Active Substance: PAZOPANIB HYDROCHLORIDE
     Indication: RENAL CANCER
     Dosage: 800 MG, 1D
     Route: 048
     Dates: start: 201506, end: 20150626

REACTIONS (9)
  - Death [Fatal]
  - Blood chloride decreased [Unknown]
  - Metastases to liver [Fatal]
  - Blood alkaline phosphatase increased [Unknown]
  - Blood albumin decreased [Unknown]
  - Lymphadenopathy [Fatal]
  - Blood sodium decreased [Unknown]
  - Aspartate aminotransferase increased [Unknown]
  - Disease progression [Fatal]

NARRATIVE: CASE EVENT DATE: 20150625
